FAERS Safety Report 8923969 (Version 1)
Quarter: 2012Q4

REPORT INFORMATION
  Report Type: 
  Country: IT (occurrence: IT)
  Receive Date: 20121126
  Receipt Date: 20121126
  Transmission Date: 20130627
  Serious: Yes (Hospitalization)
  Sender: FDA-Public Use
  Company Number: IT-BAYER-2012-122155

PATIENT
  Age: 84 Year
  Sex: Female

DRUGS (4)
  1. CARDIOASPIRIN [Suspect]
     Dosage: 100 mg, QD
     Route: 048
     Dates: start: 20120101, end: 20121107
  2. OKI [Suspect]
     Indication: ARTHRALGIA
     Dosage: 1 DF, ONCE
     Route: 048
     Dates: start: 20121107, end: 20121107
  3. MINIAS [Concomitant]
     Dosage: UNK
  4. DELAKET [Concomitant]
     Dosage: UNK

REACTIONS (2)
  - Shock haemorrhagic [Unknown]
  - Gastric ulcer haemorrhage [Unknown]
